FAERS Safety Report 4636400-4 (Version None)
Quarter: 2005Q2

REPORT INFORMATION
  Report Type: 
  Country: None (occurrence: None)
  Receive Date: 20050415
  Receipt Date: 20050404
  Transmission Date: 20051028
  Serious: Yes (Life-Threatening, Other)
  Sender: FDA-Public Use
  Company Number: DE-JNJFOC-20050201359

PATIENT
  Sex: Male

DRUGS (4)
  1. REMINYL [Suspect]
     Indication: DEMENTIA ALZHEIMER'S TYPE
     Route: 049
  2. ARELIX [Concomitant]
     Route: 049
  3. BISOPROLOL FUMARATE [Concomitant]
     Route: 049
  4. ENALAPRIL [Concomitant]
     Route: 049

REACTIONS (4)
  - DIARRHOEA [None]
  - METABOLIC ACIDOSIS [None]
  - MULTI-ORGAN FAILURE [None]
  - RENAL IMPAIRMENT [None]
